FAERS Safety Report 22074226 (Version 1)
Quarter: 2023Q1

REPORT INFORMATION
  Report Type: Spontaneous
  Country: US (occurrence: None)
  Receive Date: 20230307
  Receipt Date: 20230307
  Transmission Date: 20230417
  Serious: Yes (Hospitalization, Other)
  Sender: FDA-Public Use
  Company Number: None

PATIENT
  Age: 68 Year
  Sex: Female
  Weight: 66.6 kg

DRUGS (12)
  1. OXYCODONE HYDROCHLORIDE [Suspect]
     Active Substance: OXYCODONE HYDROCHLORIDE
     Indication: Pain
     Dosage: FREQUENCY : EVERY 6 HOURS;?
     Route: 048
  2. XANAX [Concomitant]
     Active Substance: ALPRAZOLAM
  3. resteril [Concomitant]
  4. PHENERGAN [Concomitant]
     Active Substance: PROMETHAZINE HYDROCHLORIDE
  5. METOPROLOL [Concomitant]
     Active Substance: METOPROLOL
  6. ROSUVASTATIN [Concomitant]
     Active Substance: ROSUVASTATIN
  7. CALCIUM [Concomitant]
     Active Substance: CALCIUM
  8. POTASSIUM CHLORIDE [Concomitant]
     Active Substance: POTASSIUM CHLORIDE
  9. VITAMIN D3 [Concomitant]
     Active Substance: CHOLECALCIFEROL
  10. VITAMIN C [Concomitant]
     Active Substance: ASCORBIC ACID
  11. ZINC [Concomitant]
     Active Substance: ZINC
  12. MAGNESIUM [Concomitant]
     Active Substance: MAGNESIUM

REACTIONS (6)
  - Product formulation issue [None]
  - Drug withdrawal syndrome [None]
  - Illness [None]
  - Product substitution issue [None]
  - Headache [None]
  - Drug screen negative [None]

NARRATIVE: CASE EVENT DATE: 20230304
